FAERS Safety Report 8463102-9 (Version None)
Quarter: 2012Q2

REPORT INFORMATION
  Report Type: 
  Country: None (occurrence: None)
  Receive Date: 20120625
  Receipt Date: 20120618
  Transmission Date: 20120825
  Serious: Yes (Disabling)
  Sender: FDA-Public Use
  Company Number: DK-SANOFI-AVENTIS-2012SA019187

PATIENT
  Age: 51 Year
  Sex: Female

DRUGS (1)
  1. TAXOTERE [Suspect]
     Indication: BREAST CANCER
     Route: 042
     Dates: start: 20100712, end: 20100712

REACTIONS (6)
  - GASTRIC ULCER [None]
  - NAUSEA [None]
  - NAIL DISORDER [None]
  - FATIGUE [None]
  - PARAESTHESIA [None]
  - PAIN [None]
